FAERS Safety Report 7716996-6 (Version None)
Quarter: 2011Q3

REPORT INFORMATION
  Report Type: 
  Country: None (occurrence: None)
  Receive Date: 20110829
  Receipt Date: 20110817
  Transmission Date: 20111222
  Serious: Yes (Other)
  Sender: FDA-Public Use
  Company Number: JP-SANOFI-AVENTIS-2011SA053056

PATIENT
  Age: 62 Year
  Sex: Male

DRUGS (7)
  1. RABEPRAZOLE SODIUM [Suspect]
     Indication: CORONARY ARTERIAL STENT INSERTION
     Dosage: DOSE- I TABLET / DAY S.I.D AFTER BREAKFAST
     Route: 065
  2. TICLOPIDINE HCL [Suspect]
     Indication: CORONARY ARTERIAL STENT INSERTION
     Route: 065
  3. CARVEDILOL [Concomitant]
     Indication: CORONARY ARTERIAL STENT INSERTION
     Dosage: TWO TABLETS/ DAY, B.I.D AFTER BREAKFAST AND DINNER
     Route: 065
  4. MUCOSTA [Concomitant]
     Dosage: 3 TABLETS OF 100 MG EACH DAILY
     Route: 065
  5. SIGMART [Concomitant]
     Indication: CORONARY ARTERIAL STENT INSERTION
     Dosage: 3 TABLETS/ DAY, AFTER EVER MEAL
     Route: 065
  6. PLAVIX [Suspect]
     Indication: CORONARY ARTERIAL STENT INSERTION
     Dosage: 25 MG, 2 TABLETS/DAY
     Route: 065
     Dates: start: 20060121
  7. ACETYLSALICYLIC ACID/ALUMINIUM GLYCINATE/MAGNESIUM CARBONATE [Concomitant]
     Indication: CORONARY ARTERIAL STENT INSERTION
     Route: 065

REACTIONS (7)
  - BETA 2 MICROGLOBULIN INCREASED [None]
  - BLOOD UREA INCREASED [None]
  - URINARY TRACT INFLAMMATION [None]
  - DRUG ERUPTION [None]
  - BLOOD CREATININE INCREASED [None]
  - ANAEMIA [None]
  - TUBULOINTERSTITIAL NEPHRITIS [None]
